FAERS Safety Report 15334847 (Version 1)
Quarter: 2018Q3

REPORT INFORMATION
  Report Type: Spontaneous
  Country: JP (occurrence: JP)
  Receive Date: 20180830
  Receipt Date: 20180830
  Transmission Date: 20181010
  Serious: Yes (Other)
  Sender: FDA-Public Use
  Company Number: JP-BAUSCH-BL-2018-023114

PATIENT
  Age: 16 Year
  Sex: Male

DRUGS (1)
  1. PREDNISOLONE. [Suspect]
     Active Substance: PREDNISOLONE
     Indication: HISTIOCYTIC NECROTISING LYMPHADENITIS
     Route: 065

REACTIONS (2)
  - Histiocytic necrotising lymphadenitis [Recovering/Resolving]
  - Condition aggravated [Recovering/Resolving]
